FAERS Safety Report 24764056 (Version 3)
Quarter: 2025Q1

REPORT INFORMATION
  Report Type: Spontaneous
  Country: JP (occurrence: JP)
  Receive Date: 20241223
  Receipt Date: 20250310
  Transmission Date: 20250409
  Serious: Yes (Death, Other)
  Sender: ROCHE
  Company Number: JP-CHUGAI-2024043742

PATIENT
  Age: 76 Year
  Sex: Male

DRUGS (1)
  1. HEMLIBRA [Suspect]
     Active Substance: EMICIZUMAB-KXWH
     Indication: Haemophilia A without inhibitors
     Route: 058
     Dates: start: 2019, end: 20240927

REACTIONS (4)
  - Septic shock [Fatal]
  - Cardiac arrest [Fatal]
  - Device related infection [Unknown]
  - Wound haematoma [Fatal]

NARRATIVE: CASE EVENT DATE: 20240925
